FAERS Safety Report 8016460-3 (Version None)
Quarter: 2011Q4

REPORT INFORMATION
  Report Type: 
  Country: None (occurrence: None)
  Receive Date: 20111230
  Receipt Date: 20111228
  Transmission Date: 20120403
  Serious: Yes (Other)
  Sender: FDA-Public Use
  Company Number: DE-ABBOTT-11P-062-0848538-00

PATIENT
  Sex: Female
  Weight: 57 kg

DRUGS (2)
  1. HUMIRA [Suspect]
     Indication: PRODUCT USED FOR UNKNOWN INDICATION
     Dates: start: 20101120, end: 20110701
  2. HUMIRA [Suspect]
     Dates: start: 20110822, end: 20110912

REACTIONS (8)
  - BRONCHITIS [None]
  - CYSTITIS [None]
  - ALOPECIA [None]
  - PRURITUS [None]
  - SKIN EXFOLIATION [None]
  - SWELLING FACE [None]
  - ERYTHEMA OF EYELID [None]
  - EYELID OEDEMA [None]
